FAERS Safety Report 15324279 (Version 1)
Quarter: 2018Q3

REPORT INFORMATION
  Report Type: Spontaneous
  Country: US (occurrence: US)
  Receive Date: 20180828
  Receipt Date: 20180828
  Transmission Date: 20181010
  Serious: Yes (Death, Hospitalization, Other)
  Sender: FDA-Public Use
  Company Number: US-B.I. PHARMACEUTICALS,INC./RIDGEFIELD-2018-BI-042830

PATIENT
  Age: 86 Year
  Sex: Female

DRUGS (1)
  1. SPIRIVA [Suspect]
     Active Substance: TIOTROPIUM BROMIDE MONOHYDRATE
     Indication: CHRONIC OBSTRUCTIVE PULMONARY DISEASE
     Dosage: ACTION(S) TAKEN WITH PRODUCT: NOT APPLICABLE
     Route: 055
     Dates: start: 201508

REACTIONS (11)
  - Lung neoplasm malignant [Unknown]
  - Malignant polyp [Recovered/Resolved]
  - Back pain [Unknown]
  - Bronchial secretion retention [Not Recovered/Not Resolved]
  - Respiratory failure [Fatal]
  - Spinal compression fracture [Unknown]
  - Pneumonia [Unknown]
  - Pneumonia [Unknown]
  - Cardiac failure congestive [Fatal]
  - Pneumonia aspiration [Fatal]
  - Sputum retention [Not Recovered/Not Resolved]

NARRATIVE: CASE EVENT DATE: 2016
